FAERS Safety Report 25925314 (Version 1)
Quarter: 2025Q4

REPORT INFORMATION
  Report Type: Spontaneous
  Country: US (occurrence: US)
  Receive Date: 20251015
  Receipt Date: 20251015
  Transmission Date: 20260117
  Serious: Yes (Hospitalization, Other)
  Sender: Medicap Laboratories
  Company Number: US-Medicap-000076

PATIENT
  Age: 28 Year
  Sex: Female

DRUGS (2)
  1. QUETIAPINE [Suspect]
     Active Substance: QUETIAPINE
     Indication: Bipolar I disorder
     Dosage: QUETIAPINE FUMARATE EXTENDED RELEASE (ER) AT A DOSE OF 800 MG EVERY NIGHT WAS ADMINISTERED
     Route: 065
  2. QUETIAPINE [Suspect]
     Active Substance: QUETIAPINE
     Indication: Substance use disorder
     Dosage: QUETIAPINE FUMARATE EXTENDED RELEASE (ER) AT A DOSE OF 800 MG EVERY NIGHT WAS ADMINISTERED
     Route: 065

REACTIONS (13)
  - Food interaction [Recovered/Resolved]
  - Toxicity to various agents [Recovered/Resolved]
  - Blepharospasm [Recovered/Resolved]
  - Eye movement disorder [Recovered/Resolved]
  - Nausea [Recovered/Resolved]
  - Vomiting [Recovered/Resolved]
  - Lethargy [Recovered/Resolved]
  - Anxiety [Recovered/Resolved]
  - Disorganised speech [Recovered/Resolved]
  - Muscle spasms [Recovered/Resolved]
  - Tachycardia [Recovered/Resolved]
  - Electrocardiogram QT prolonged [Recovered/Resolved]
  - Mental status changes [Recovered/Resolved]
